APPROVED DRUG PRODUCT: NILSTAT
Active Ingredient: NYSTATIN
Strength: 100,000 UNITS/ML **Federal Register determination that product was not discontinued or withdrawn for safety or effectiveness reasons**
Dosage Form/Route: SUSPENSION;ORAL
Application: N050299 | Product #001
Applicant: CHARTWELL MOLECULES LLC
Approved: Approved Prior to Jan 1, 1982 | RLD: Yes | RS: No | Type: DISCN